FAERS Safety Report 4328772-5 (Version None)
Quarter: 2004Q1

REPORT INFORMATION
  Report Type: 
  Country: None (occurrence: None)
  Receive Date: 20040329
  Receipt Date: 20040225
  Transmission Date: 20041129
  Serious: Yes (Hospitalization)
  Sender: FDA-Public Use
  Company Number: 04P-163-0251387-00

PATIENT
  Age: 57 Year
  Sex: Female
  Weight: 79.3795 kg

DRUGS (10)
  1. HUMIRA [Suspect]
     Indication: RHEUMATOID ARTHRITIS
     Dosage: 40 MG, 1 IN 2 WK, SUBCUTANEOUS
     Route: 058
     Dates: start: 20030501, end: 20030901
  2. HUMIRA [Suspect]
     Indication: RHEUMATOID ARTHRITIS
     Dosage: 40 MG, 1 IN 2 WK, SUBCUTANEOUS
     Route: 058
     Dates: start: 20031101, end: 20031101
  3. AVANDAMET [Concomitant]
  4. PREDNISONE [Concomitant]
  5. METOPROLOL SUCCINATE [Concomitant]
  6. HYDROCHLOROTHIAZIDE [Concomitant]
  7. RABEPRAZOLE SODIUM [Concomitant]
  8. BIMATOPROST [Concomitant]
  9. POTASSIUM CHLORIDE [Concomitant]
  10. MONTELUKAST SODIUM [Concomitant]

REACTIONS (5)
  - ARTHRITIS INFECTIVE [None]
  - CELLULITIS [None]
  - INFLUENZA [None]
  - NAUSEA [None]
  - VOMITING [None]
